FAERS Safety Report 8531840-5 (Version None)
Quarter: 2012Q3

REPORT INFORMATION
  Report Type: 
  Country: None (occurrence: None)
  Receive Date: 20120723
  Receipt Date: 20120717
  Transmission Date: 20120928
  Serious: No
  Sender: FDA-Public Use
  Company Number: US-PFIZER INC-2012172549

PATIENT
  Sex: Male
  Weight: 99.773 kg

DRUGS (1)
  1. VIAGRA [Suspect]
     Indication: ERECTILE DYSFUNCTION
     Dosage: 50 MG, ONLY ONCE
     Route: 048
     Dates: start: 20120716, end: 20120717

REACTIONS (2)
  - PRODUCT QUALITY ISSUE [None]
  - POOR QUALITY DRUG ADMINISTERED [None]
